FAERS Safety Report 9878203 (Version 2)
Quarter: 2014Q1

REPORT INFORMATION
  Report Type: Spontaneous
  Country: FR (occurrence: FR)
  Receive Date: 20140206
  Receipt Date: 20140212
  Transmission Date: 20141002
  Serious: Yes (Life-Threatening, Hospitalization, Other)
  Sender: FDA-Public Use
  Company Number: FR-PFIZER INC-2014030485

PATIENT
  Age: 74 Year
  Sex: Male

DRUGS (7)
  1. SALAZOPYRINE [Suspect]
     Dosage: UNK
     Route: 048
     Dates: end: 20131214
  2. NEXAVAR [Suspect]
     Indication: HEPATOCELLULAR CARCINOMA
     Dosage: 800 MG, DAILY
     Route: 048
     Dates: start: 201307, end: 201311
  3. NOVONORM [Concomitant]
  4. AMLOR [Concomitant]
  5. LASILIX [Concomitant]
  6. KARDEGIC [Concomitant]
  7. INEXIUM /01479302/ [Concomitant]

REACTIONS (2)
  - Lung disorder [Unknown]
  - Interstitial lung disease [Recovering/Resolving]
